FAERS Safety Report 16723757 (Version 1)
Quarter: 2019Q3

REPORT INFORMATION
  Report Type: Spontaneous
  Country: GB (occurrence: GB)
  Receive Date: 20190821
  Receipt Date: 20190821
  Transmission Date: 20191005
  Serious: Yes (Other)
  Sender: FDA-Public Use
  Company Number: GB-ACCORD-152251

PATIENT
  Age: 64 Year
  Sex: Male

DRUGS (8)
  1. HYDROXOCOBALAMIN [Concomitant]
     Active Substance: HYDROXOCOBALAMIN
  2. ACETYLSALICYLIC ACID [Concomitant]
     Active Substance: ASPIRIN
  3. ALENDRONATE SODIUM/ALENDRONIC ACID [Concomitant]
  4. COLECALCIFEROL [Concomitant]
     Active Substance: CHOLECALCIFEROL
  5. SERTRALINE [Suspect]
     Active Substance: SERTRALINE HYDROCHLORIDE
     Indication: DEPRESSION
     Route: 048
     Dates: start: 20190222, end: 20190307
  6. ATORVASTATIN [Concomitant]
     Active Substance: ATORVASTATIN
     Dosage: AT NIGHT
  7. OMEPRAZOLE. [Concomitant]
     Active Substance: OMEPRAZOLE
  8. LACTULOSE. [Concomitant]
     Active Substance: LACTULOSE

REACTIONS (3)
  - Hallucination [Unknown]
  - Ageusia [Unknown]
  - Confusional state [Unknown]

NARRATIVE: CASE EVENT DATE: 20190306
